FAERS Safety Report 10011995 (Version 1)
Quarter: 2014Q1

REPORT INFORMATION
  Report Type: Spontaneous
  Country: US (occurrence: None)
  Receive Date: 20140312
  Receipt Date: 20140312
  Transmission Date: 20141002
  Serious: Yes (Congenital Anomaly)
  Sender: FDA-Public Use
  Company Number: 2014AP001688

PATIENT
  Sex: 0

DRUGS (2)
  1. CARBAMAZEPINE TABLETS CHEWABLE USP 100MG [Suspect]
     Route: 064
  2. VALPROIC ACID [Suspect]
     Route: 064

REACTIONS (5)
  - Bicuspid aortic valve [None]
  - Congenital aortic stenosis [None]
  - Dysmorphism [None]
  - Exposure during pregnancy [None]
  - Foetal exposure during pregnancy [None]
